FAERS Safety Report 4383071-0 (Version None)
Quarter: 2004Q2

REPORT INFORMATION
  Report Type: 
  Country: None (occurrence: None)
  Receive Date: 20040618
  Receipt Date: 20040614
  Transmission Date: 20050107
  Serious: Yes (Life-Threatening, Hospitalization)
  Sender: FDA-Public Use
  Company Number: 2004PK01016

PATIENT
  Age: 71 Year
  Sex: Male
  Weight: 92 kg

DRUGS (9)
  1. BELOC ZOK [Suspect]
     Indication: HYPERTENSION
     Dosage: 23.75 MG DAILY PO
     Route: 048
     Dates: start: 20031201
  2. ACTRAPID HUMAN [Suspect]
     Indication: DIABETES MELLITUS NON-INSULIN-DEPENDENT
     Dosage: 58 IU DAILY SQ
     Route: 058
     Dates: start: 20031201, end: 20040410
  3. ACTRAPID HUMAN [Suspect]
     Indication: DIABETES MELLITUS NON-INSULIN-DEPENDENT
     Dosage: 36 IU DAILY SQ
  4. AMARYL [Suspect]
     Indication: DIABETES MELLITUS
     Dosage: 3 MG DAILY PO
     Route: 048
     Dates: start: 19990101
  5. DELIX [Suspect]
     Indication: HYPERTENSION
     Dosage: 2.5 MG DAILY PO
     Route: 048
     Dates: start: 20000101
  6. INSULIN SEMILENTE [Suspect]
     Indication: DIABETES MELLITUS
     Dosage: 30 IU DAILY SQ
     Dates: start: 20031201
  7. INSULIN SEMILENTE [Suspect]
     Indication: DIABETES MELLITUS
     Dosage: 20 IU DAILY SQ
  8. DIGITOXIN TAB [Concomitant]
  9. ISCOVER [Concomitant]

REACTIONS (4)
  - DRUG INTERACTION [None]
  - LOSS OF CONSCIOUSNESS [None]
  - MARKEDLY REDUCED DIETARY INTAKE [None]
  - SHOCK HYPOGLYCAEMIC [None]
